FAERS Safety Report 9119371 (Version 2)
Quarter: 2013Q2

REPORT INFORMATION
  Report Type: Spontaneous
  Country: DE (occurrence: DE)
  Receive Date: 20130226
  Receipt Date: 20130417
  Transmission Date: 20140414
  Serious: Yes (Death, Hospitalization)
  Sender: FDA-Public Use
  Company Number: PHHY2013DE015665

PATIENT
  Sex: Female

DRUGS (2)
  1. AFINITOR [Suspect]
     Indication: BREAST CANCER
     Dosage: 100 MG, QD
     Route: 048
     Dates: start: 20121115, end: 201302
  2. EXEMESTANE [Concomitant]
     Indication: BREAST CANCER METASTATIC
     Dosage: 25 MG, QD
     Route: 048
     Dates: start: 20121115, end: 201302

REACTIONS (7)
  - Pneumonitis [Fatal]
  - Lung infiltration [Fatal]
  - Respiratory failure [Fatal]
  - Dyspnoea [Fatal]
  - Haemoptysis [Fatal]
  - Malaise [Fatal]
  - Pyrexia [Fatal]
